FAERS Safety Report 19679155 (Version 4)
Quarter: 2021Q3

REPORT INFORMATION
  Report Type: Spontaneous
  Country: BR (occurrence: BR)
  Receive Date: 20210810
  Receipt Date: 20210906
  Transmission Date: 20211014
  Serious: No
  Sender: FDA-Public Use
  Company Number: BR-GLAXOSMITHKLINE-BRCH2021052927

PATIENT
  Age: 51 Year
  Sex: Male

DRUGS (4)
  1. NICORETTE WHITE ICE MINT [Suspect]
     Active Substance: NICOTINE
     Indication: SMOKING CESSATION THERAPY
     Dosage: 4 MG
     Route: 065
     Dates: start: 20110101
  2. NICORETTE WHITE ICE MINT [Suspect]
     Active Substance: NICOTINE
     Dosage: 4 MG
     Route: 065
     Dates: start: 20110101
  3. NICORETTE WHITE ICE MINT [Suspect]
     Active Substance: NICOTINE
     Dosage: 2 MG (10 TO 12 GUMS A DAY)
     Route: 065
     Dates: start: 20110101
  4. NICORETTE WHITE ICE MINT [Suspect]
     Active Substance: NICOTINE
     Dosage: 2 MG (10 TO 12 GUMS A DAY)
     Route: 065
     Dates: start: 20110101

REACTIONS (5)
  - Dry eye [Recovering/Resolving]
  - Intentional product use issue [Not Recovered/Not Resolved]
  - Nicotine dependence [Not Recovered/Not Resolved]
  - Vision blurred [Recovering/Resolving]
  - Reflux laryngitis [Recovering/Resolving]

NARRATIVE: CASE EVENT DATE: 20210201
